FAERS Safety Report 24254320 (Version 1)
Quarter: 2024Q3

REPORT INFORMATION
  Report Type: Spontaneous
  Country: US (occurrence: None)
  Receive Date: 20240826
  Receipt Date: 20240826
  Transmission Date: 20241016
  Serious: No
  Sender: Public
  Company Number: None

PATIENT
  Age: 78 Year
  Sex: Female
  Weight: 57.15 kg

DRUGS (12)
  1. CANDESARTAN [Suspect]
     Active Substance: CANDESARTAN
     Indication: Hypertension
     Dosage: OTHER QUANTITY : 90 TABLET(S);?FREQUENCY : DAILY;?
     Route: 048
     Dates: start: 20240709, end: 20240823
  2. CYCLOSPORINE [Concomitant]
     Active Substance: CYCLOSPORINE
  3. VALTREX [Concomitant]
     Active Substance: VALACYCLOVIR HYDROCHLORIDE
  4. ASPIRIN [Concomitant]
     Active Substance: ASPIRIN
  5. NORVASC [Concomitant]
     Active Substance: AMLODIPINE BESYLATE
  6. PREMARIN VAGINAL [Concomitant]
     Active Substance: ESTROGENS, CONJUGATED
  7. LIDOCAINE [Concomitant]
     Active Substance: LIDOCAINE
  8. CHLORHEXIDINE [Concomitant]
     Active Substance: CHLORHEXIDINE
  9. VITAMINS [Concomitant]
     Active Substance: VITAMINS
  10. VITAMIN D3 [Concomitant]
     Active Substance: CHOLECALCIFEROL
  11. BIOTENE NOS [Concomitant]
     Active Substance: UNSPECIFIED INGREDIENT
  12. CEPACOL [Concomitant]
     Active Substance: BENZOCAINE

REACTIONS (6)
  - Pharyngitis [None]
  - Salivary gland mucocoele [None]
  - Dysphagia [None]
  - Mucosal inflammation [None]
  - Cyst [None]
  - Epiglottis dysfunction [None]

NARRATIVE: CASE EVENT DATE: 20240807
